FAERS Safety Report 8501882 (Version 2)
Quarter: 2013Q1

REPORT INFORMATION
  Report Type: Spontaneous
  Country: US (occurrence: US)
  Receive Date: 20120410
  Receipt Date: 20130104
  Transmission Date: 20140127
  Serious: Yes (Hospitalization, Other)
  Sender: FDA-Public Use
  Company Number: US-BAYER-2012-032766

PATIENT
  Age: 33 Year
  Sex: Female
  Weight: 88.44 kg

DRUGS (9)
  1. YASMIN [Suspect]
     Indication: CONTRACEPTION
     Dosage: UNK
     Dates: start: 2005, end: 2007
  2. YASMIN [Suspect]
     Indication: CONTRACEPTION
     Dosage: UNK
     Dates: start: 201005, end: 20100923
  3. ROBAXIN [Concomitant]
     Indication: MUSCLE RELAXANT THERAPY
     Dosage: 1 TABLET BID
     Dates: start: 20100824, end: 201101
  4. VITAMIN D [Concomitant]
     Dosage: DAILY
  5. CALCIUM CARBONATE W/VITAMIN D NOS [Concomitant]
     Dosage: DAILY
  6. ONE-A-DAY [MINERALS NOS,VITAMINS NOS] [Concomitant]
     Dosage: DAILY
  7. MOBIC [Concomitant]
     Dosage: 15 MG, UNK
  8. LORTAB [Concomitant]
     Indication: PAIN MANAGEMENT
     Dosage: 7.5/500, UP TO 3 A DAY
  9. VICODIN ES [Concomitant]

REACTIONS (8)
  - Deep vein thrombosis [Recovered/Resolved]
  - Local swelling [Recovered/Resolved]
  - Pain in extremity [Recovered/Resolved]
  - Abasia [Recovered/Resolved]
  - Hypoaesthesia [Recovered/Resolved]
  - Paraesthesia [Recovered/Resolved]
  - Deep vein thrombosis [None]
  - Injury [None]
